FAERS Safety Report 16475011 (Version 3)
Quarter: 2019Q3

REPORT INFORMATION
  Report Type: Report from Study
  Country: US (occurrence: US)
  Receive Date: 20190625
  Receipt Date: 20190705
  Transmission Date: 20191004
  Serious: Yes (Death, Hospitalization)
  Sender: FDA-Public Use
  Company Number: US-PFIZER INC-2019265790

PATIENT
  Age: 54 Year
  Sex: Female
  Weight: 57.4 kg

DRUGS (115)
  1. AUGMENTIN [Concomitant]
     Active Substance: AMOXICILLIN\CLAVULANATE POTASSIUM
     Indication: SINUSITIS
     Dosage: [AMOXICILLIN SODIUM 500MG]/[CLAVULANATE POTASSIUM 125 MG], DAILY (1 TABLET DAILY FOR 7 DAYS)
     Route: 048
     Dates: start: 20190311, end: 20190318
  2. CETIRIZINE [Concomitant]
     Active Substance: CETIRIZINE HYDROCHLORIDE
     Indication: HYPERSENSITIVITY
     Dosage: 10 MG, UNK
     Route: 048
     Dates: start: 20190117
  3. LORAZEPAM. [Concomitant]
     Active Substance: LORAZEPAM
     Dosage: 1 MG, Q6H PRN
     Route: 042
     Dates: start: 20190621, end: 20190621
  4. RIVAROXABAN [Concomitant]
     Active Substance: RIVAROXABAN
     Indication: THROMBOSIS PROPHYLAXIS
     Dosage: 20 MG, DAILY
     Route: 048
     Dates: start: 20190108
  5. POLYETHYLENE GLYCOL [Concomitant]
     Active Substance: POLYETHYLENE GLYCOLS
     Indication: CONSTIPATION
     Dosage: 17 G, UNK (PACKET)
     Dates: start: 20190523
  6. HEPARIN [Concomitant]
     Active Substance: HEPARIN SODIUM
     Indication: THROMBOSIS PROPHYLAXIS
     Dosage: 5000 IU, 3X/DAY (EVERY 8 HOURS)
     Route: 058
     Dates: start: 20190529, end: 20190602
  7. FENTANYL. [Concomitant]
     Active Substance: FENTANYL
     Indication: PAIN
     Dosage: 25 UG / HOUR PATCH
     Route: 062
     Dates: start: 20190604, end: 20190605
  8. DILAUDID [Concomitant]
     Active Substance: HYDROMORPHONE HYDROCHLORIDE
     Dosage: 1 MG, SINGLE
     Route: 048
     Dates: start: 20190604, end: 20190605
  9. LACTULOSE. [Concomitant]
     Active Substance: LACTULOSE
     Dosage: 20 G, DAILY AS NEEDED
     Route: 048
     Dates: start: 20190606
  10. VERSED [Concomitant]
     Active Substance: MIDAZOLAM HYDROCHLORIDE
     Indication: LIGHT ANAESTHESIA
     Dosage: 1 MG, SINGLE (GIVEN TWICE)
     Route: 042
     Dates: start: 20190604, end: 20190604
  11. DEXAMETHASONE. [Concomitant]
     Active Substance: DEXAMETHASONE
     Indication: NAUSEA
     Dosage: 4 MG, AS NEEDED
     Route: 042
     Dates: start: 20190604, end: 20190604
  12. PALBOCICLIB [Suspect]
     Active Substance: PALBOCICLIB
     Dosage: 75 MG, CYCLIC (DAYS 1 TO 21)
     Route: 048
     Dates: start: 20190430, end: 20190527
  13. LORAZEPAM. [Concomitant]
     Active Substance: LORAZEPAM
     Dosage: 0.5 MG, EVERY 8 HOURS AS NEEDED
     Route: 048
     Dates: start: 20190604, end: 20190605
  14. NICOTINE. [Concomitant]
     Active Substance: NICOTINE
     Indication: SMOKING CESSATION THERAPY
     Dosage: 21 MG, DAILY (21MG/24 HOUR PATCH)
     Route: 062
     Dates: start: 20190528, end: 20190605
  15. SODIUM CHLORIDE. [Concomitant]
     Active Substance: SODIUM CHLORIDE
     Indication: FLUID REPLACEMENT
     Dosage: 3-10 ML, 2X/DAY (EVERY 12 HOURS)
     Dates: start: 20190527
  16. SODIUM CHLORIDE. [Concomitant]
     Active Substance: SODIUM CHLORIDE
     Indication: HYPONATRAEMIA
     Dosage: CONTINUOUS
     Route: 042
     Dates: start: 20190604, end: 20190605
  17. PANTOPRAZOLE [Concomitant]
     Active Substance: PANTOPRAZOLE
     Indication: OESOPHAGITIS
     Dosage: 40 MG, 2X/DAY
     Route: 048
     Dates: start: 20190605
  18. COMPAZINE [Concomitant]
     Active Substance: PROCHLORPERAZINE MALEATE
     Dosage: 5 MG, Q6H PRN
     Route: 048
     Dates: start: 20190616, end: 20190618
  19. FENTANYL. [Concomitant]
     Active Substance: FENTANYL
     Dosage: 37 UG, Q72H (PATCH)
     Route: 062
     Dates: start: 20190605, end: 20190616
  20. DILAUDID [Concomitant]
     Active Substance: HYDROMORPHONE HYDROCHLORIDE
     Dosage: 1 MG, SINGLE
     Route: 048
     Dates: start: 20190602, end: 20190602
  21. DILAUDID [Concomitant]
     Active Substance: HYDROMORPHONE HYDROCHLORIDE
     Dosage: 2 MG, X1
     Route: 048
     Dates: start: 20190616, end: 20190616
  22. DULCOLAX NOS [Concomitant]
     Active Substance: BISACODYL OR DOCUSATE SODIUM
     Indication: CONSTIPATION
     Dosage: 10 MG, DAILY
     Route: 054
     Dates: start: 20190601, end: 20190605
  23. HALDOL [Concomitant]
     Active Substance: HALOPERIDOL
     Indication: AGITATION
     Dosage: 5 MG, Q1H PRN
     Route: 042
     Dates: start: 20190621, end: 20190621
  24. IPRATROPIUM BROMIDE/SALBUTAMOL [Concomitant]
     Indication: DYSPNOEA
     Dosage: 3ML LNNH Q6H PRN
     Dates: start: 20190621, end: 20190621
  25. PALBOCICLIB [Suspect]
     Active Substance: PALBOCICLIB
     Indication: BREAST CANCER
     Dosage: 125 MG, CYCLIC (DAYS 1 TO 21)
     Route: 048
     Dates: start: 20190226, end: 20190324
  26. PALBOCICLIB [Suspect]
     Active Substance: PALBOCICLIB
     Dosage: 100MG CYCLIC (DAYS 1 TO 21)
     Route: 048
     Dates: start: 20190325, end: 20190429
  27. LORAZEPAM. [Concomitant]
     Active Substance: LORAZEPAM
     Indication: ANXIETY
     Dosage: 1 MG, EVERY 8 HOURS AS NEEDED
     Route: 048
     Dates: start: 20100809, end: 20190616
  28. LORAZEPAM. [Concomitant]
     Active Substance: LORAZEPAM
     Indication: NAUSEA
     Dosage: 1 MG, UNK
     Route: 042
     Dates: start: 20190527, end: 20190527
  29. LORAZEPAM. [Concomitant]
     Active Substance: LORAZEPAM
     Indication: ANXIETY
     Dosage: 0.5 MG, SINGLE
     Route: 042
     Dates: start: 20190529, end: 20190529
  30. ONDANSETRON [Concomitant]
     Active Substance: ONDANSETRON
     Indication: NAUSEA
     Dosage: 8 MG, (EVERY 8 HOURS) AS NEEDED
     Route: 042
     Dates: start: 20190527
  31. RIVAROXABAN [Concomitant]
     Active Substance: RIVAROXABAN
     Dosage: 20 MG, DAILY
     Route: 048
     Dates: start: 20190528, end: 20190528
  32. SINGULAIR [Concomitant]
     Active Substance: MONTELUKAST SODIUM
     Indication: ASTHMA
     Dosage: 10 MG, DAILY (NIGHTLY)
     Route: 048
     Dates: start: 20080119
  33. POTASSIUM CHLORIDE. [Concomitant]
     Active Substance: POTASSIUM CHLORIDE
     Indication: HYPOKALAEMIA
     Dosage: 10 MEQ, UNK
     Route: 042
     Dates: start: 20190528, end: 20190528
  34. POTASSIUM CHLORIDE. [Concomitant]
     Active Substance: POTASSIUM CHLORIDE
     Dosage: 10 MEQ, Q1H (INTRAVENOUS PIGGYBACK)
     Route: 042
     Dates: start: 20190604, end: 20190604
  35. POTASSIUM CHLORIDE ER [Concomitant]
     Active Substance: POTASSIUM CHLORIDE
     Dosage: 40 MEQ, UNK
     Route: 048
     Dates: start: 20190528, end: 20190528
  36. POTASSIUM CHLORIDE ER [Concomitant]
     Active Substance: POTASSIUM CHLORIDE
     Dosage: 40 MEQ, EVERY 4 HRS
     Route: 048
     Dates: start: 20190604, end: 20190605
  37. LOVENOX [Concomitant]
     Active Substance: ENOXAPARIN SODIUM
     Indication: THROMBOSIS PROPHYLAXIS
     Dosage: 60 MG, UNK
     Route: 058
     Dates: start: 20190528, end: 20190529
  38. MAGNESIUM SULFATE. [Concomitant]
     Active Substance: MAGNESIUM SULFATE
     Indication: HYPOMAGNESAEMIA
     Dosage: 2 G, UNK (INTRAVENOUS PIGGY BACK)
     Route: 042
     Dates: start: 20190529, end: 20190529
  39. COMPAZINE [Concomitant]
     Active Substance: PROCHLORPERAZINE MALEATE
     Indication: VOMITING
     Dosage: 10 MG, EVERY 6 HOURS AS NEEDED
     Route: 048
     Dates: start: 20190605, end: 20190616
  40. ZOFRAN [Concomitant]
     Active Substance: ONDANSETRON HYDROCHLORIDE
     Indication: NAUSEA
     Dosage: 4 MG, SINGLE
     Route: 042
     Dates: start: 20190604, end: 20190604
  41. DILAUDID [Concomitant]
     Active Substance: HYDROMORPHONE HYDROCHLORIDE
     Dosage: 1 MG, Q4H PRN
     Route: 048
     Dates: start: 20190616, end: 20190621
  42. DILAUDID [Concomitant]
     Active Substance: HYDROMORPHONE HYDROCHLORIDE
     Dosage: 1 MG, NIGHTLY
     Route: 048
     Dates: start: 20190617, end: 20190618
  43. LACTATED RINGERS SOLUTION [Concomitant]
     Active Substance: CALCIUM CHLORIDE\POTASSIUM CHLORIDE\SODIUM CHLORIDE\SODIUM LACTATE
     Indication: CARDIOGENIC SHOCK
     Dosage: 1000 ML, UNK
     Route: 042
     Dates: start: 20190621, end: 20190621
  44. DIFLUCAN [Concomitant]
     Active Substance: FLUCONAZOLE
     Dosage: 100 MG, DAILY (Q24H)
     Route: 048
     Dates: start: 20190605, end: 20190605
  45. LETROZOLE. [Concomitant]
     Active Substance: LETROZOLE
     Indication: BREAST CANCER
     Dosage: 2.5 MG, DAILY
     Route: 048
     Dates: start: 20190225
  46. MORPHINE ER [Concomitant]
     Active Substance: MORPHINE
     Dosage: 30 MG, 3X/DAY
     Route: 048
     Dates: start: 20190325, end: 20190601
  47. ONDANSETRON ODT [Concomitant]
     Active Substance: ONDANSETRON
     Indication: VOMITING
  48. SENNA [Concomitant]
     Active Substance: SENNA LEAF\SENNOSIDES\SENNOSIDES A AND B
     Dosage: 17.2 MG, 2X/DAY
     Route: 048
     Dates: start: 20190529, end: 20190605
  49. TIOTROPIUM BROMIDE [Concomitant]
     Active Substance: TIOTROPIUM BROMIDE
     Indication: ASTHMA
     Dosage: 2.5 UG/ACTUATION MIST 2 PUFFS DAILY
     Dates: start: 20080119
  50. POTASSIUM CHLORIDE ER [Concomitant]
     Active Substance: POTASSIUM CHLORIDE
     Dosage: 20 MEQ, SINGLE
     Route: 048
     Dates: start: 20190601, end: 20190601
  51. PANTOPRAZOLE [Concomitant]
     Active Substance: PANTOPRAZOLE
     Indication: OESOPHAGITIS
     Dosage: 40 MG, UNK
     Route: 042
     Dates: start: 20190527, end: 20190527
  52. LOVENOX [Concomitant]
     Active Substance: ENOXAPARIN SODIUM
     Dosage: 40 MG, DAILY
     Route: 058
     Dates: start: 20190605
  53. CARAFATE [Concomitant]
     Active Substance: SUCRALFATE
     Indication: OESOPHAGITIS
     Dosage: 1 G, 4X/DAY
     Route: 048
     Dates: start: 20190530, end: 20190604
  54. CARAFATE [Concomitant]
     Active Substance: SUCRALFATE
     Dosage: 1 G, 4X/DAY (QID)
     Route: 048
     Dates: start: 20190605
  55. CHLORHEXIDINE [Concomitant]
     Active Substance: CHLORHEXIDINE
     Indication: MUCOSAL INFLAMMATION
     Dosage: 15 ML, 2X/DAY (EVERY 12 HOURS)
     Route: 048
     Dates: start: 20190602, end: 20190605
  56. ZOSYN [Concomitant]
     Active Substance: PIPERACILLIN SODIUM\TAZOBACTAM SODIUM
     Indication: PNEUMONIA
     Dosage: 3.375 G, 3X/DAY (EVERY 8 HOURS)
     Route: 042
     Dates: start: 20190603, end: 20190605
  57. LIDOCAINE PF [Concomitant]
     Active Substance: LIDOCAINE
     Indication: LOCAL ANAESTHESIA
     Dosage: 100MG/5ML, AS NEEDED
     Route: 042
     Dates: start: 20190604, end: 20190604
  58. DEXAMETHASONE. [Concomitant]
     Active Substance: DEXAMETHASONE
     Indication: TRANSAMINASES INCREASED
     Dosage: 4 MG, DAILY
     Route: 048
     Dates: start: 20190618, end: 20190621
  59. IPRATROPIUM BROMIDE/ALBUTEROL SULFATE [Concomitant]
     Active Substance: ALBUTEROL SULFATE\IPRATROPIUM BROMIDE
     Indication: DYSPNOEA
     Dosage: [IPRATROPIUM BROMIDE 0.5 MG]/[ALBUTEROL SULFATE 2.5 MG]/3ML 4X/DAY
     Route: 055
     Dates: start: 20190605, end: 20190605
  60. MORPHINE IR [Concomitant]
     Active Substance: MORPHINE
     Indication: CANCER PAIN
     Dosage: 15 MG, AS NEEDED (EVERY 3 HOURS)
     Route: 048
     Dates: start: 20190102, end: 20190601
  61. MORPHINE IR [Concomitant]
     Active Substance: MORPHINE
     Dosage: 15 MG, AS NEEDED (EVERY 3 HOURS)
     Route: 048
     Dates: start: 20190529, end: 20190601
  62. ONDANSETRON ODT [Concomitant]
     Active Substance: ONDANSETRON
     Indication: NAUSEA
     Dosage: 8 MG, 3X/DAY (EVERY 8 HOURS) AS NEEDED
     Route: 048
     Dates: start: 20190311
  63. POLYETHYLENE GLYCOL 3350. [Concomitant]
     Active Substance: POLYETHYLENE GLYCOL 3350
     Indication: CONSTIPATION
     Dosage: 17 G, DAILY (17 GM PACKET DAILY WITH WATER)
     Route: 048
     Dates: start: 20190102
  64. PROAIR HFA [Concomitant]
     Active Substance: ALBUTEROL SULFATE
     Indication: BRONCHOSPASM
     Dosage: 1-2 PUFFS, EVERY 4-6 HOURS, AS NEEDED
     Dates: start: 20181115
  65. PROCHLORPERAZINE. [Concomitant]
     Active Substance: PROCHLORPERAZINE
     Indication: VOMITING
  66. SENNA [Concomitant]
     Active Substance: SENNA LEAF\SENNOSIDES\SENNOSIDES A AND B
     Indication: CONSTIPATION
     Dosage: 8.6 MG, DAILY
     Route: 048
     Dates: start: 20190102, end: 20190523
  67. MORPHINE [Concomitant]
     Active Substance: MORPHINE
     Indication: DYSPNOEA
     Dosage: 6 MG, EVERY 4 HRS (AS NEEDED)
     Route: 042
     Dates: start: 20190528, end: 20190529
  68. SIMETHICONE (DIMETHICONE) [Concomitant]
     Active Substance: DIMETHICONE
     Indication: DYSPEPSIA
     Dosage: 80 MG, 4X/DAY (AS NEEDED)
     Dates: start: 20190528, end: 20190604
  69. POTASSIUM CHLORIDE ER [Concomitant]
     Active Substance: POTASSIUM CHLORIDE
     Indication: HYPOKALAEMIA
     Dosage: 20 MEQ, 2X/DAY (FOR 2 DAYS)
     Route: 048
     Dates: start: 20190501, end: 20190503
  70. MIRALAX [Concomitant]
     Active Substance: POLYETHYLENE GLYCOL 3350
     Indication: CONSTIPATION
     Dosage: 17 G, DAILY
     Route: 048
     Dates: start: 20190529, end: 20190605
  71. COMPAZINE [Concomitant]
     Active Substance: PROCHLORPERAZINE MALEATE
     Indication: NAUSEA
     Dosage: 10 MG, SINGLE
     Route: 048
     Dates: start: 20190530, end: 20190530
  72. COMPAZINE [Concomitant]
     Active Substance: PROCHLORPERAZINE MALEATE
     Dosage: 5 MG, Q8H
     Route: 048
     Dates: start: 20190620, end: 20190621
  73. FENTANYL. [Concomitant]
     Active Substance: FENTANYL
     Dosage: 25 UG, Q10MIN PRN
     Route: 042
     Dates: start: 20190621, end: 20190621
  74. DILAUDID [Concomitant]
     Active Substance: HYDROMORPHONE HYDROCHLORIDE
     Dosage: 2 MG, EVERY 4 HRS (AS NEEDED)
     Route: 048
     Dates: start: 20190604, end: 20190605
  75. SOLU-MEDROL [Concomitant]
     Active Substance: METHYLPREDNISOLONE SODIUM SUCCINATE
     Dosage: 50 MG, 3X/DAY (EVERY 8 HOURS)
     Route: 042
     Dates: start: 20190602, end: 20190603
  76. PREDNISONE. [Concomitant]
     Active Substance: PREDNISONE
     Indication: DYSPNOEA
     Dosage: 50 MG, DAILY
     Route: 048
     Dates: start: 20190603, end: 20190605
  77. DIFLUCAN [Concomitant]
     Active Substance: FLUCONAZOLE
     Indication: ANTIFUNGAL PROPHYLAXIS
     Dosage: 200 MG, SINGLE
     Route: 048
     Dates: start: 20190604, end: 20190604
  78. PROPOFOL. [Concomitant]
     Active Substance: PROPOFOL
     Indication: SEDATION
     Dosage: 200 MCG/KG/MIN
     Route: 042
     Dates: start: 20190604, end: 20190604
  79. LEVAQUIN [Concomitant]
     Active Substance: LEVOFLOXACIN
     Indication: PNEUMONIA
     Dosage: 500 MG, DAILY (Q24H)
     Route: 048
     Dates: start: 20190605, end: 20190605
  80. LASIX [Concomitant]
     Active Substance: FUROSEMIDE
     Indication: PLEURAL EFFUSION
     Dosage: 40 MG, X1
     Route: 042
     Dates: start: 20190620, end: 20190621
  81. TORSEMIDE. [Concomitant]
     Active Substance: TORSEMIDE
     Indication: HYPONATRAEMIA
     Dosage: 20 MG, DAILY
     Route: 048
     Dates: start: 20190619, end: 20190621
  82. SYMBICORT [Concomitant]
     Active Substance: BUDESONIDE\FORMOTEROL FUMARATE DIHYDRATE
     Indication: ASTHMA
     Dosage: [BUDESONIDE 160 MCG] / [FORMOTEROL FUMARATE 4.5 MCG], 2 PUFFS DAILY
     Route: 055
     Dates: start: 20180123
  83. LORAZEPAM. [Concomitant]
     Active Substance: LORAZEPAM
     Indication: NAUSEA
     Dosage: 0.5 MG, EVERY 8 HOURS AS NEEDED
     Route: 048
     Dates: start: 20190530, end: 20190604
  84. MORPHINE ER [Concomitant]
     Active Substance: MORPHINE
     Indication: CANCER PAIN
     Dosage: 30 MG, 2X/DAY
     Route: 048
     Dates: start: 20190225, end: 20190325
  85. NICOTINE. [Concomitant]
     Active Substance: NICOTINE
     Dosage: 21 MG, DAILY (21MG/24 HOUR PATCH)
     Route: 062
     Dates: start: 20190606
  86. SODIUM CHLORIDE. [Concomitant]
     Active Substance: SODIUM CHLORIDE
     Indication: MEDICAL PROCEDURE
     Dosage: KEEP VEINS OPEN (KVO)
     Route: 042
     Dates: start: 20190604, end: 20190604
  87. MAGNESIUM SULFATE. [Concomitant]
     Active Substance: MAGNESIUM SULFATE
     Dosage: 1 G, SINGLE
     Route: 042
     Dates: start: 20190601, end: 20190601
  88. DOCUSATE SODIUM. [Concomitant]
     Active Substance: DOCUSATE SODIUM
     Indication: CONSTIPATION
     Dosage: 100 MG, 2X/DAY
     Route: 048
     Dates: start: 20190529, end: 20190605
  89. DILAUDID [Concomitant]
     Active Substance: HYDROMORPHONE HYDROCHLORIDE
     Indication: PAIN
     Dosage: 1 MG, EVERY 4 HRS (AS NEEDED)
     Route: 048
     Dates: start: 20190601, end: 20190604
  90. SOLU-MEDROL [Concomitant]
     Active Substance: METHYLPREDNISOLONE SODIUM SUCCINATE
     Indication: DYSPNOEA
     Dosage: 80 MG, 2X/DAY (EVERY 12 HOURS)
     Route: 042
     Dates: start: 20190601, end: 20190602
  91. REMERON [Concomitant]
     Active Substance: MIRTAZAPINE
     Dosage: 7.5 MG, NIGHTLY
     Route: 048
     Dates: start: 20190616, end: 20190621
  92. LEVAQUIN [Concomitant]
     Active Substance: LEVOFLOXACIN
     Dosage: 500 MG, DAILY (FOR 2 DAYS)
     Route: 048
     Dates: start: 20190606
  93. LORATADINE. [Concomitant]
     Active Substance: LORATADINE
     Indication: SEASONAL ALLERGY
     Dosage: 10 MG, DAILY
     Route: 048
     Dates: start: 20190617, end: 20190621
  94. LORAZEPAM. [Concomitant]
     Active Substance: LORAZEPAM
     Dosage: 0.5 MG, SINGLE
     Route: 042
     Dates: start: 20190530, end: 20190530
  95. PROCHLORPERAZINE. [Concomitant]
     Active Substance: PROCHLORPERAZINE
     Indication: NAUSEA
     Dosage: 10 MG, EVERY 6 HOURS AS NEEDED
     Dates: start: 20190311
  96. MORPHINE [Concomitant]
     Active Substance: MORPHINE
     Indication: PAIN
     Dosage: EVERY 4 HRS (AS NEEDED)
     Route: 042
     Dates: start: 20190527, end: 20190528
  97. MORPHINE [Concomitant]
     Active Substance: MORPHINE
     Dosage: 4 MG, EVERY 4 HRS
     Route: 042
     Dates: start: 20190529, end: 20190601
  98. MORPHINE [Concomitant]
     Active Substance: MORPHINE
     Dosage: 2 MG, Q1H PRN
     Route: 042
     Dates: start: 20190621, end: 20190621
  99. SIMETHICONE (DIMETHICONE) [Concomitant]
     Active Substance: DIMETHICONE
     Indication: ABDOMINAL DISTENSION
     Dosage: 80 MG, EVERY 8 HOURS AS NEEDED
     Route: 048
     Dates: start: 20190604, end: 20190605
  100. SODIUM CHLORIDE. [Concomitant]
     Active Substance: SODIUM CHLORIDE
     Indication: DEHYDRATION
     Dosage: UNK
     Route: 042
     Dates: start: 20190531, end: 20190605
  101. PANTOPRAZOLE SODIUM. [Concomitant]
     Active Substance: PANTOPRAZOLE SODIUM
     Indication: OESOPHAGITIS
     Dosage: 40 MG, 2X/DAY
     Route: 048
     Dates: start: 20190530, end: 20190605
  102. ZOFRAN [Concomitant]
     Active Substance: ONDANSETRON HYDROCHLORIDE
     Indication: NAUSEA
     Dosage: 8 MG, SINGLE
     Route: 048
     Dates: start: 20190530, end: 20190530
  103. LACTATED RINGERS SOLUTION [Concomitant]
     Active Substance: CALCIUM CHLORIDE\POTASSIUM CHLORIDE\SODIUM CHLORIDE\SODIUM LACTATE
     Indication: DEHYDRATION
     Dosage: CONTINUOUS
     Route: 042
     Dates: start: 20190604, end: 20190604
  104. DIFLUCAN [Concomitant]
     Active Substance: FLUCONAZOLE
     Dosage: 100 MG, DAILY
     Route: 048
     Dates: start: 20190617, end: 20190621
  105. REMERON [Concomitant]
     Active Substance: MIRTAZAPINE
     Indication: INSOMNIA
     Dosage: 7.5 MG, DAILY (NIGHTLY)
     Route: 048
     Dates: start: 20190604, end: 20190605
  106. IPRATROPIUM BROMIDE/ALBUTEROL SULFATE [Concomitant]
     Active Substance: ALBUTEROL SULFATE\IPRATROPIUM BROMIDE
     Dosage: [IPRATROPIUM BROMIDE 0.5 MG]/[ALBUTEROL SULFATE 2.5 MG]/3ML Q6H PRN
     Route: 055
     Dates: start: 20190621, end: 20190621
  107. SODIUM CHLORIDE. [Concomitant]
     Active Substance: SODIUM CHLORIDE
     Indication: HYPONATRAEMIA
     Dosage: 1 G, 3X/DAY
     Route: 048
     Dates: start: 20190620, end: 20190620
  108. AMLODIPINE [Concomitant]
     Active Substance: AMLODIPINE BESYLATE
     Indication: HYPERTENSION
     Dosage: 5 MG, DAILY
     Route: 048
     Dates: start: 20181220, end: 20190102
  109. SIMETHICONE (DIMETHICONE) [Concomitant]
     Active Substance: DIMETHICONE
     Dosage: 80 MG, 3X/DAY (EVERY 8 HOURS)
     Route: 048
     Dates: start: 20190605
  110. SODIUM CHLORIDE. [Concomitant]
     Active Substance: SODIUM CHLORIDE
     Dosage: 3% PREMIX BOLUS 50 ML, X1
     Route: 042
     Dates: start: 20190619, end: 20190619
  111. LOVENOX [Concomitant]
     Active Substance: ENOXAPARIN SODIUM
     Indication: THROMBOSIS PROPHYLAXIS
     Dosage: 55 MG, UNK
     Route: 058
     Dates: start: 20190602, end: 20190603
  112. DILAUDID [Concomitant]
     Active Substance: HYDROMORPHONE HYDROCHLORIDE
     Dosage: 2 MG, (EVERY 4 HOURS) AS NEEDED
     Dates: start: 20190605
  113. LACTULOSE. [Concomitant]
     Active Substance: LACTULOSE
     Indication: CONSTIPATION
     Dosage: 20 G, 3X/DAY
     Route: 048
     Dates: start: 20190601, end: 20190605
  114. DIFLUCAN [Concomitant]
     Active Substance: FLUCONAZOLE
     Dosage: 100 MG, DAILY (FOR 14 DAYS)
     Route: 048
     Dates: start: 20190605, end: 20190617
  115. SODIUM CHLORIDE. [Concomitant]
     Active Substance: SODIUM CHLORIDE
     Indication: HYPOVOLAEMIA

REACTIONS (3)
  - Neoplasm progression [Fatal]
  - Confusional state [Not Recovered/Not Resolved]
  - Hepatic failure [Fatal]

NARRATIVE: CASE EVENT DATE: 20190615
